FAERS Safety Report 11414685 (Version 1)
Quarter: 2015Q3

REPORT INFORMATION
  Report Type: Spontaneous
  Country: US (occurrence: None)
  Receive Date: 20150821
  Receipt Date: 20150821
  Transmission Date: 20151125
  Serious: Yes (Other)
  Sender: FDA-Public Use
  Company Number: 2015SMT00229

PATIENT
  Age: 74 Year
  Sex: Male
  Weight: 90.7 kg

DRUGS (5)
  1. NOVOLOG (INSULIN APSART RECOMBINANT) [Concomitant]
  2. LANTUS (INSULIN GLARGINE RECOMBINANT) [Concomitant]
  3. UNSPECIFIED HIGH BLOOD PRESSURE MEDICATION [Concomitant]
     Active Substance: UNSPECIFIED INGREDIENT
  4. REGRANEX [Suspect]
     Active Substance: BECAPLERMIN
     Indication: SKIN ULCER
     Dosage: UNK UNK, 1X/DAY, TOPICAL
     Route: 061
     Dates: start: 20150715, end: 20150727
  5. UNSPECIFIED BLOOD THINNER [Concomitant]
     Active Substance: UNSPECIFIED INGREDIENT

REACTIONS (4)
  - Gangrene [None]
  - Toe amputation [None]
  - Application site infection [None]
  - Application site discolouration [None]

NARRATIVE: CASE EVENT DATE: 20150720
